FAERS Safety Report 8910303 (Version 3)
Quarter: 2013Q4

REPORT INFORMATION
  Report Type: Spontaneous
  Country: AU (occurrence: AU)
  Receive Date: 20121114
  Receipt Date: 20131022
  Transmission Date: 20140711
  Serious: Yes (Death, Disabling)
  Sender: FDA-Public Use
  Company Number: AU-COVIDIEN/TYCO HEALTHCARE/MALLINCKRODT-T201203861

PATIENT
  Age: 66 Year
  Sex: Female

DRUGS (3)
  1. EXALGO EXTENDED RELEASE [Suspect]
     Indication: PAIN
     Dosage: 16 MG, 1 IN 1 DAY
     Route: 048
     Dates: start: 20120925
  2. EXALGO EXTENDED RELEASE [Suspect]
     Dosage: 16 MG, 1 IN 1 DAY
     Route: 048
     Dates: start: 201208
  3. EXALGO EXTENDED RELEASE [Suspect]
     Dosage: 8 MG, UNK
     Route: 048
     Dates: start: 201001

REACTIONS (2)
  - Pain [Recovering/Resolving]
  - Medication residue present [Unknown]
